FAERS Safety Report 4531525-6 (Version None)
Quarter: 2004Q4

REPORT INFORMATION
  Report Type: 
  Country: None (occurrence: None)
  Receive Date: 20041220
  Receipt Date: 20041208
  Transmission Date: 20050328
  Serious: Yes (Hospitalization, Other)
  Sender: FDA-Public Use
  Company Number: US-JNJFOC-20041006731

PATIENT
  Sex: Female
  Weight: 87.54 kg

DRUGS (5)
  1. REMICADE [Suspect]
     Indication: CROHN'S DISEASE
     Route: 042
  2. 6-MP [Concomitant]
  3. PREDNISONE [Concomitant]
  4. PHENERGAN [Concomitant]
  5. CODEINE [Concomitant]

REACTIONS (1)
  - HODGKIN'S DISEASE [None]
